FAERS Safety Report 9689391 (Version 1)
Quarter: 2013Q4

REPORT INFORMATION
  Report Type: Spontaneous
  Country: US (occurrence: US)
  Receive Date: 20131114
  Receipt Date: 20131114
  Transmission Date: 20140711
  Serious: Yes (Other)
  Sender: FDA-Public Use
  Company Number: CHPA2013US017002

PATIENT
  Age: 67 Year
  Sex: Female

DRUGS (1)
  1. VOLTAREN GEL [Suspect]
     Indication: OSTEOARTHRITIS
     Dosage: 2 G, Q6H
     Route: 061
     Dates: start: 2012

REACTIONS (2)
  - Cataract [Recovered/Resolved]
  - Drug administered at inappropriate site [Unknown]
